FAERS Safety Report 6942865-5 (Version None)
Quarter: 2010Q3

REPORT INFORMATION
  Report Type: 
  Country: None (occurrence: None)
  Receive Date: 20100826
  Receipt Date: 20100812
  Transmission Date: 20110219
  Serious: Yes (Other)
  Sender: FDA-Public Use
  Company Number: GB-ELI_LILLY_AND_COMPANY-GB201005002450

PATIENT
  Sex: Female
  Weight: 55 kg

DRUGS (5)
  1. PROZAC [Suspect]
     Indication: DEPRESSED MOOD
     Dosage: 10 MG, UNKNOWN
     Route: 048
     Dates: end: 20100325
  2. PROZAC [Suspect]
     Dosage: 20 MG, UNK
     Dates: start: 20100326, end: 20100501
  3. PROZAC [Suspect]
     Dosage: UNK, UNK
     Route: 048
  4. LUSTRAL [Concomitant]
     Dosage: UNK, UNKNOWN
     Route: 065
  5. MIRTAZAPINE [Concomitant]
     Dosage: UNK, UNKNOWN
     Route: 065

REACTIONS (14)
  - ACTIVITIES OF DAILY LIVING IMPAIRED [None]
  - ARTHRALGIA [None]
  - ASTHENIA [None]
  - DEPRESSION [None]
  - DIZZINESS [None]
  - HYPERREFLEXIA [None]
  - HYPOAESTHESIA [None]
  - JOINT SWELLING [None]
  - MUSCLE TIGHTNESS [None]
  - MYALGIA [None]
  - PAIN IN EXTREMITY [None]
  - PRURITUS [None]
  - RED BLOOD CELL SEDIMENTATION RATE INCREASED [None]
  - URTICARIA [None]
